FAERS Safety Report 8622228-7 (Version None)
Quarter: 2012Q3

REPORT INFORMATION
  Report Type: 
  Country: None (occurrence: None)
  Receive Date: 20120827
  Receipt Date: 20120821
  Transmission Date: 20120928
  Serious: Yes (Hospitalization, Other)
  Sender: FDA-Public Use
  Company Number: US-AMGEN-USASP2012052944

PATIENT
  Age: 69 Year
  Sex: Male

DRUGS (2)
  1. XGEVA [Suspect]
     Indication: PROSTATE CANCER
     Route: 058
  2. XGEVA [Suspect]
     Indication: METASTASES TO BONE

REACTIONS (4)
  - RESPIRATORY RATE DECREASED [None]
  - HEART RATE INCREASED [None]
  - UNRESPONSIVE TO STIMULI [None]
  - MALAISE [None]
